FAERS Safety Report 5404259-3 (Version None)
Quarter: 2007Q3

REPORT INFORMATION
  Report Type: 
  Country: None (occurrence: None)
  Receive Date: 20070731
  Receipt Date: 20070720
  Transmission Date: 20080115
  Serious: Yes (Hospitalization, Other)
  Sender: FDA-Public Use
  Company Number: 39209

PATIENT
  Age: 66 Year
  Sex: Male

DRUGS (1)
  1. LEUCOVORIN CALCIUM [Suspect]
     Indication: COLORECTAL CANCER METASTATIC
     Dosage: 864MG/IV/EVERY 2 WEEKS
     Route: 042
     Dates: start: 20070612

REACTIONS (4)
  - BACK PAIN [None]
  - HYPERTENSION [None]
  - MUSCULOSKELETAL PAIN [None]
  - RED BLOOD CELL COUNT INCREASED [None]
